FAERS Safety Report 6931083-2 (Version None)
Quarter: 2010Q3

REPORT INFORMATION
  Report Type: 
  Country: None (occurrence: None)
  Receive Date: 20100818
  Receipt Date: 20100804
  Transmission Date: 20110219
  Serious: Yes (Life-Threatening)
  Sender: FDA-Public Use
  Company Number: AU-ABBOTT-09P-008-0591094-00

PATIENT
  Sex: Male
  Weight: 80 kg

DRUGS (11)
  1. HUMIRA [Suspect]
     Indication: RHEUMATOID ARTHRITIS
     Route: 058
     Dates: start: 20040201, end: 20090724
  2. ACETAMINOPHEN AND CODEINE PHOSPHATE [Concomitant]
     Indication: INSOMNIA
     Dosage: 6-8 TABLETS
     Route: 048
     Dates: start: 20010301
  3. ACETAMINOPHEN AND CODEINE PHOSPHATE [Concomitant]
     Indication: RHEUMATOID ARTHRITIS
     Route: 048
     Dates: start: 20061201
  4. NORMISON [Concomitant]
     Indication: INSOMNIA
     Route: 048
     Dates: start: 20010301
  5. ZOTON [Concomitant]
     Indication: GASTROOESOPHAGEAL REFLUX DISEASE
     Dates: start: 20030225
  6. ZOTON [Concomitant]
     Indication: PROPHYLAXIS
  7. VENTOLIN [Concomitant]
     Indication: ASTHMA
     Dates: start: 19700101
  8. SERETIDE [Concomitant]
     Indication: ASTHMA
     Route: 055
     Dates: start: 20060201
  9. FERROGRADUMET [Concomitant]
     Indication: IRON DEFICIENCY
     Route: 048
     Dates: start: 20090904
  10. NORFLOXACIN [Concomitant]
     Indication: PROPHYLAXIS
     Route: 048
     Dates: start: 20090731
  11. METHOTREXATE [Concomitant]
     Indication: RHEUMATOID ARTHRITIS
     Dates: start: 20040201, end: 20090724

REACTIONS (6)
  - LARGE GRANULAR LYMPHOCYTOSIS [None]
  - MALAISE [None]
  - MARROW HYPERPLASIA [None]
  - MYALGIA [None]
  - NEUTROPENIA [None]
  - WEIGHT DECREASED [None]
